FAERS Safety Report 9218780 (Version 1)
Quarter: 2013Q2

REPORT INFORMATION
  Report Type: Spontaneous
  Country: BR (occurrence: BR)
  Receive Date: 20130409
  Receipt Date: 20130409
  Transmission Date: 20140414
  Serious: Yes (Life-Threatening, Hospitalization)
  Sender: FDA-Public Use
  Company Number: BR-B.I. PHARMACEUTICALS,INC./RIDGEFIELD-2013-BR-00381BR

PATIENT
  Age: 63 Year
  Sex: Male
  Weight: 32 kg

DRUGS (9)
  1. SPIRIVA RESPIMAT [Suspect]
     Indication: LUNG DISORDER
     Dates: start: 2012
  2. BEROTEC [Concomitant]
     Indication: LUNG DISORDER
     Route: 055
  3. ATROVENT [Concomitant]
     Indication: LUNG DISORDER
     Route: 055
  4. SERETIDE [Concomitant]
     Indication: LUNG DISORDER
     Dates: start: 2012
  5. DUOVENT [Concomitant]
     Indication: LUNG DISORDER
  6. DIPROSPAN [Concomitant]
     Indication: DYSPNOEA
     Dates: start: 2005
  7. AMINOFILINA [Concomitant]
     Indication: LUNG DISORDER
  8. TEOFILINA [Concomitant]
     Indication: LUNG DISORDER
  9. RISEDRONATO [Concomitant]
     Indication: OSTEOPOROSIS
     Dates: start: 2005

REACTIONS (2)
  - Dyspnoea [Not Recovered/Not Resolved]
  - Renal surgery [Recovered/Resolved]
